FAERS Safety Report 5941847-X (Version None)
Quarter: 2008Q4

REPORT INFORMATION
  Report Type: 
  Country: None (occurrence: None)
  Receive Date: 20081105
  Receipt Date: 20081027
  Transmission Date: 20090506
  Serious: Yes (Other)
  Sender: FDA-Public Use
  Company Number: NL-ASTRAZENECA-2008AC02797

PATIENT
  Age: 14564 Day
  Sex: Female
  Weight: 75 kg

DRUGS (3)
  1. SEROQUEL [Suspect]
     Indication: PSYCHOTIC DISORDER
     Route: 048
     Dates: start: 20080731, end: 20080731
  2. PALIPERIDON [Interacting]
     Indication: PSYCHOTIC DISORDER
     Dates: start: 20080508
  3. LITHIUM [Concomitant]
     Indication: AFFECTIVE DISORDER
     Dates: start: 20000101

REACTIONS (2)
  - DRUG INTERACTION [None]
  - SYNCOPE [None]
